FAERS Safety Report 8483302-1 (Version None)
Quarter: 2012Q2

REPORT INFORMATION
  Report Type: 
  Country: None (occurrence: None)
  Receive Date: 20120625
  Receipt Date: 20120612
  Transmission Date: 20120825
  Serious: Yes (Hospitalization)
  Sender: FDA-Public Use
  Company Number: DSA_58007_2012

PATIENT
  Age: 87 Year
  Sex: Female

DRUGS (7)
  1. OFLOCET /00731801/ (OFLOCET-OFLOXACIN) (NOT SPECIFIED) [Suspect]
     Indication: SIGMOIDITIS
     Dosage: (5 MG/ML INTRAVENOUS (NOT OTHERWISE SPECIFIED))
     Route: 042
     Dates: start: 20120425
  2. LOVENOX [Suspect]
     Indication: PRODUCT USED FOR UNKNOWN INDICATION
     Dosage: (DF INTRAVENOUS (NOT OTHERWISE SPECIFIED))
     Route: 042
     Dates: start: 20120427
  3. PLAVIX [Suspect]
     Indication: PRODUCT USED FOR UNKNOWN INDICATION
     Dosage: (DF ORAL)
     Route: 048
  4. FLAGYL [Suspect]
     Indication: PRODUCT USED FOR UNKNOWN INDICATION
     Dosage: (DF INTRAVENOUS (NOT OTHERWISE SPECIFIED))
     Route: 042
     Dates: start: 20120425, end: 20120505
  5. ACUPAN [Concomitant]
  6. ACETAMINOPHEN [Concomitant]
  7. VENOFER [Concomitant]

REACTIONS (1)
  - VASCULAR PURPURA [None]
